FAERS Safety Report 9716814 (Version 1)
Quarter: 2013Q4

REPORT INFORMATION
  Report Type: Spontaneous
  Country: US (occurrence: US)
  Receive Date: 20131127
  Receipt Date: 20131127
  Transmission Date: 20140711
  Serious: Yes (Other)
  Sender: FDA-Public Use
  Company Number: US-TEVA-446720USA

PATIENT
  Sex: Female

DRUGS (1)
  1. COPAXONE [Suspect]
     Dates: start: 2009, end: 2010

REACTIONS (1)
  - Multiple sclerosis relapse [Unknown]
